FAERS Safety Report 9226367 (Version 1)
Quarter: 2013Q2

REPORT INFORMATION
  Report Type: Spontaneous
  Country: US (occurrence: US)
  Receive Date: 20130411
  Receipt Date: 20130411
  Transmission Date: 20140414
  Serious: No
  Sender: FDA-Public Use
  Company Number: US-009507513-1304USA004723

PATIENT
  Sex: Female

DRUGS (3)
  1. PEGINTRON [Suspect]
     Indication: CHRONIC HEPATITIS C
     Dosage: 150 MICROGRAM, QW
     Route: 058
  2. REBETOL [Suspect]
     Dosage: 600 MG, BID
     Route: 048
  3. REBETOL [Suspect]
     Dosage: 400 MG, BID
     Route: 048

REACTIONS (5)
  - Anaemia [Not Recovered/Not Resolved]
  - Erythema [Not Recovered/Not Resolved]
  - Skin lesion [Not Recovered/Not Resolved]
  - Dyspnoea [Not Recovered/Not Resolved]
  - Fatigue [Not Recovered/Not Resolved]
